FAERS Safety Report 18125423 (Version 2)
Quarter: 2020Q3

REPORT INFORMATION
  Report Type: Spontaneous
  Country: NL (occurrence: NL)
  Receive Date: 20200807
  Receipt Date: 20200820
  Transmission Date: 20201103
  Serious: Yes (Other)
  Sender: FDA-Public Use
  Company Number: NL-ALLERGAN-2029442US

PATIENT
  Sex: Female

DRUGS (1)
  1. TESTOSTERONE UNK [Suspect]
     Active Substance: TESTOSTERONE
     Indication: VIRILISM
     Dosage: UNK

REACTIONS (2)
  - Intraductal proliferative breast lesion [Recovered/Resolved]
  - Off label use [Unknown]
